FAERS Safety Report 9569455 (Version 2)
Quarter: 2013Q3

REPORT INFORMATION
  Report Type: Spontaneous
  Country: US (occurrence: US)
  Receive Date: 20130930
  Receipt Date: 20130930
  Transmission Date: 20140515
  Serious: No
  Sender: FDA-Public Use
  Company Number: US-AMGEN-USASP2013057734

PATIENT
  Age: 47 Year
  Sex: Male
  Weight: 115.65 kg

DRUGS (9)
  1. ENBREL [Suspect]
     Indication: PRODUCT USED FOR UNKNOWN INDICATION
     Dosage: 50 MG, QWK
     Route: 058
  2. LISINOPRIL [Concomitant]
     Dosage: 5 MG, UNK
  3. CARVEDILOL [Concomitant]
     Dosage: 25 MG, UNK
  4. LOVAZA [Concomitant]
     Dosage: 1 G, UNK
  5. PRAVASTATIN [Concomitant]
     Dosage: 10 MG, UNK
  6. METHOTREXATE [Concomitant]
     Dosage: 2.5 MG, UNK
  7. FOLIC ACID [Concomitant]
     Dosage: 20 MG, UNK
  8. VITAMIN D                          /00107901/ [Concomitant]
     Dosage: 1000 UNIT, UNK
  9. METFORMIN [Concomitant]
     Dosage: 500 MG, UNK

REACTIONS (3)
  - Injection site reaction [Unknown]
  - Injection site erythema [Recovering/Resolving]
  - Injection site pruritus [Recovering/Resolving]
